FAERS Safety Report 20447525 (Version 1)
Quarter: 2022Q1

REPORT INFORMATION
  Report Type: Report from Study
  Country: US (occurrence: US)
  Receive Date: 20220209
  Receipt Date: 20220209
  Transmission Date: 20220424
  Serious: No
  Sender: FDA-Public Use
  Company Number: US-HRARD-2021000188

PATIENT
  Age: 63 Year
  Sex: Female

DRUGS (4)
  1. LYSODREN [Suspect]
     Active Substance: MITOTANE
     Dosage: UNSPECIFIED START DOSE
     Route: 048
     Dates: start: 20191031
  2. LYSODREN [Suspect]
     Active Substance: MITOTANE
     Dosage: 05 TABLETS BID
     Route: 048
     Dates: start: 20201029
  3. LYSODREN [Suspect]
     Active Substance: MITOTANE
     Dosage: 08 TABLETS DAILY, ONGOING
     Route: 048
     Dates: start: 20210304
  4. HYDROCORTISONE [Concomitant]
     Active Substance: HYDROCORTISONE

REACTIONS (4)
  - Depression [Not Recovered/Not Resolved]
  - Dysgeusia [Not Recovered/Not Resolved]
  - Fatigue [Not Recovered/Not Resolved]
  - Decreased appetite [Not Recovered/Not Resolved]

NARRATIVE: CASE EVENT DATE: 20191115
